FAERS Safety Report 8971377 (Version 3)
Quarter: 2013Q3

REPORT INFORMATION
  Report Type: Spontaneous
  Country: US (occurrence: US)
  Receive Date: 20121217
  Receipt Date: 20130822
  Transmission Date: 20140515
  Serious: Yes (Hospitalization)
  Sender: FDA-Public Use
  Company Number: US-B.I. PHARMACEUTICALS,INC./RIDGEFIELD-2012-BI-02928BP

PATIENT
  Age: 92 Year
  Sex: Female
  Weight: 65.77 kg

DRUGS (8)
  1. PRADAXA [Suspect]
     Indication: ATRIAL FIBRILLATION
     Dosage: 300 MG
     Route: 048
     Dates: start: 20101207
  2. PLAVIX [Concomitant]
     Dates: start: 20031210
  3. SIMVASTATIN [Concomitant]
     Dates: start: 20031210
  4. RANITIDINE [Concomitant]
     Dates: start: 20031210
  5. METOPROLOL [Concomitant]
     Dates: start: 20031210
  6. RAMIPRIL [Concomitant]
     Dates: start: 20031210
  7. HYDROCHLOROTHIAZIDE [Concomitant]
     Dates: start: 20031210
  8. ASPIRIN [Concomitant]

REACTIONS (1)
  - Gastrointestinal haemorrhage [Unknown]
